FAERS Safety Report 9730412 (Version 2)
Quarter: 2013Q4

REPORT INFORMATION
  Report Type: Spontaneous
  Country: JP (occurrence: JP)
  Receive Date: 20131202
  Receipt Date: 20131218
  Transmission Date: 20140711
  Serious: Yes (Hospitalization)
  Sender: FDA-Public Use
  Company Number: JP-ELI_LILLY_AND_COMPANY-JP201311007261

PATIENT
  Age: 75 Year
  Sex: Female

DRUGS (1)
  1. HUMULIN NPH [Suspect]
     Indication: PRODUCT USED FOR UNKNOWN INDICATION
     Dosage: UNK
     Route: 058
     Dates: start: 1984, end: 20000926

REACTIONS (3)
  - Pyelonephritis [Recovered/Resolved]
  - Hypoaesthesia [Recovered/Resolved]
  - Hypoglycaemia [Recovered/Resolved]
